FAERS Safety Report 10543782 (Version 1)
Quarter: 2014Q4

REPORT INFORMATION
  Report Type: Spontaneous
  Country: US (occurrence: None)
  Receive Date: 20141010
  Receipt Date: 20141010
  Transmission Date: 20150529
  Serious: No
  Sender: FDA-Public Use
  Company Number: 163-POMAL-14074589

PATIENT
  Age: 62 Year
  Sex: Female
  Weight: 54.43 kg

DRUGS (16)
  1. TAMOXIFEN [Concomitant]
     Active Substance: TAMOXIFEN
  2. ARIMIDEX [Concomitant]
     Active Substance: ANASTROZOLE
  3. CALCIUM [Concomitant]
     Active Substance: CALCIUM
  4. LIDOCAINE. [Concomitant]
     Active Substance: LIDOCAINE
  5. DEXAMETHASONE. [Concomitant]
     Active Substance: DEXAMETHASONE
  6. WARFARIN [Concomitant]
     Active Substance: WARFARIN
  7. VELCADE [Concomitant]
     Active Substance: BORTEZOMIB
  8. METOPROLOL TARTRATE. [Concomitant]
     Active Substance: METOPROLOL TARTRATE
  9. ALOE VERA LIDOCAINE (ALOE VERA LEAF) [Concomitant]
  10. MULTIVITAMINS [Concomitant]
     Active Substance: VITAMINS
  11. MIRALAX (MACROGOL) [Concomitant]
  12. DULCOLAX (BISACODYL) [Concomitant]
     Active Substance: BISACODYL
  13. ZOMETA [Concomitant]
     Active Substance: ZOLEDRONIC ACID
  14. OXYCODONE [Concomitant]
     Active Substance: OXYCODONE
  15. POMALYST [Suspect]
     Active Substance: POMALIDOMIDE
     Indication: PLASMA CELL MYELOMA
     Route: 048
     Dates: start: 20140308
  16. PROCHLORPHERAZINE [Concomitant]

REACTIONS (1)
  - Alopecia [None]

NARRATIVE: CASE EVENT DATE: 201403
